FAERS Safety Report 5085792-3 (Version None)
Quarter: 2006Q3

REPORT INFORMATION
  Report Type: 
  Country: None (occurrence: None)
  Receive Date: 20060817
  Receipt Date: 20060807
  Transmission Date: 20061208
  Serious: Yes (Other)
  Sender: FDA-Public Use
  Company Number: 2006095733

PATIENT
  Sex: Female

DRUGS (1)
  1. CADUET [Suspect]
     Indication: DRUG USE FOR UNKNOWN INDICATION

REACTIONS (2)
  - CORONARY ARTERY DISEASE [None]
  - DIABETES MELLITUS [None]
